FAERS Safety Report 16929335 (Version 1)
Quarter: 2019Q4

REPORT INFORMATION
  Report Type: Spontaneous
  Country: JP (occurrence: JP)
  Receive Date: 20191017
  Receipt Date: 20191017
  Transmission Date: 20200122
  Serious: Yes (Other)
  Sender: FDA-Public Use
  Company Number: NVSC2019JP005901

PATIENT
  Age: 58 Year
  Sex: Male

DRUGS (4)
  1. DOXORUBICIN [Suspect]
     Active Substance: DOXORUBICIN
     Indication: LANGERHANS CELL SARCOMA
     Dosage: 50 MG/M2
     Route: 065
  2. PREDNISOLONE. [Suspect]
     Active Substance: PREDNISOLONE
     Indication: LANGERHANS CELL SARCOMA
     Dosage: 100 MG
     Route: 065
  3. CYCLOPHOSPHAMIDE. [Suspect]
     Active Substance: CYCLOPHOSPHAMIDE
     Indication: LANGERHANS CELL SARCOMA
     Dosage: 750 MG/M2
     Route: 065
  4. VINCRISTINE [Suspect]
     Active Substance: VINCRISTINE
     Indication: LANGERHANS CELL SARCOMA
     Dosage: 1.4 MG/M2
     Route: 065

REACTIONS (3)
  - Langerhans cell sarcoma [Unknown]
  - Drug ineffective for unapproved indication [Unknown]
  - Malignant neoplasm progression [Unknown]
